FAERS Safety Report 6856097-2 (Version None)
Quarter: 2010Q3

REPORT INFORMATION
  Report Type: 
  Country: None (occurrence: None)
  Receive Date: 20100715
  Receipt Date: 20100715
  Transmission Date: 20110219
  Serious: No
  Sender: FDA-Public Use
  Company Number: None

PATIENT
  Age: 41 Year
  Sex: Female
  Weight: 49.8957 kg

DRUGS (3)
  1. TRAZODONE HCL [Suspect]
     Indication: ANXIETY
     Dosage: 100 MG NIGHT BUCCAL
     Route: 002
     Dates: start: 20100708, end: 20100710
  2. TRAZODONE HCL [Suspect]
     Indication: DEPRESSION
     Dosage: 100 MG NIGHT BUCCAL
     Route: 002
     Dates: start: 20100708, end: 20100710
  3. TRAZODONE HCL [Suspect]
     Indication: SLEEP DISORDER
     Dosage: 100 MG NIGHT BUCCAL
     Route: 002
     Dates: start: 20100708, end: 20100710

REACTIONS (4)
  - CONFUSIONAL STATE [None]
  - CONVULSION [None]
  - EYE MOVEMENT DISORDER [None]
  - HEAD TITUBATION [None]
